FAERS Safety Report 4389868-5 (Version None)
Quarter: 2004Q2

REPORT INFORMATION
  Report Type: 
  Country: None (occurrence: None)
  Receive Date: 20040630
  Receipt Date: 20040617
  Transmission Date: 20050107
  Serious: Yes (Hospitalization, Other)
  Sender: FDA-Public Use
  Company Number: 2004039191

PATIENT
  Age: 56 Year
  Sex: Female
  Weight: 61 kg

DRUGS (9)
  1. SILDENAFIL (SILDENAFIL) [Suspect]
     Indication: PULMONARY HYPERTENSION
     Dosage: 60 MG (3 IN 1 D), ORAL
     Route: 048
     Dates: start: 20040514, end: 20040526
  2. AMLODIPINE [Concomitant]
  3. PRAVASTATIN [Concomitant]
  4. CLONIDINE [Concomitant]
  5. ROFECOXIB [Concomitant]
  6. ZOPICLONE (ZOPICLONE) [Concomitant]
  7. WARFARIN (WARFARIN) [Concomitant]
  8. ENOXAPARIN SODIUM [Concomitant]
  9. ATENOLOL [Concomitant]

REACTIONS (3)
  - FATIGUE [None]
  - OEDEMA PERIPHERAL [None]
  - RASH ERYTHEMATOUS [None]
